FAERS Safety Report 14206564 (Version 15)
Quarter: 2021Q2

REPORT INFORMATION
  Report Type: Report from Study
  Country: None (occurrence: NL)
  Receive Date: 20171120
  Receipt Date: 20210429
  Transmission Date: 20210716
  Serious: Yes (Other)
  Sender: FDA-Public Use
  Company Number: NL-ABBVIE-17K-114-2164922-00

PATIENT
  Age: 55 Year
  Sex: Male
  Weight: 90 kg

DRUGS (3)
  1. DUODOPA [Suspect]
     Active Substance: CARBIDOPA\LEVODOPA
     Indication: PARKINSON^S DISEASE
     Dosage: MD: 4.5 ML CD: 3.7ML/H ED: 2.5 ML
     Route: 050
     Dates: start: 20151005
  2. DUODOPA [Suspect]
     Active Substance: CARBIDOPA\LEVODOPA
     Dosage: MD: 4.5 ML CD: 2.7ML/H ED: 2.5 ML
     Route: 050
  3. MADOPAR [Concomitant]
     Active Substance: BENSERAZIDE HYDROCHLORIDE\LEVODOPA
     Indication: PARKINSON^S DISEASE

REACTIONS (59)
  - Mental disorder [Not Recovered/Not Resolved]
  - Decreased interest [Not Recovered/Not Resolved]
  - Emotional distress [Not Recovered/Not Resolved]
  - Sluggishness [Not Recovered/Not Resolved]
  - Irritability [Unknown]
  - Impaired quality of life [Unknown]
  - Weight decreased [Recovered/Resolved]
  - Bradykinesia [Unknown]
  - Unevaluable event [Unknown]
  - General physical health deterioration [Not Recovered/Not Resolved]
  - Disinhibition [Not Recovered/Not Resolved]
  - Tension [Not Recovered/Not Resolved]
  - Mobility decreased [Not Recovered/Not Resolved]
  - Freezing phenomenon [Not Recovered/Not Resolved]
  - Freezing phenomenon [Recovered/Resolved]
  - General physical condition abnormal [Not Recovered/Not Resolved]
  - Feeling abnormal [Unknown]
  - Wound complication [Unknown]
  - Dyskinesia [Not Recovered/Not Resolved]
  - Intentional self-injury [Not Recovered/Not Resolved]
  - Psychiatric symptom [Not Recovered/Not Resolved]
  - Choking [Not Recovered/Not Resolved]
  - Apathy [Not Recovered/Not Resolved]
  - Mood altered [Not Recovered/Not Resolved]
  - Loss of personal independence in daily activities [Recovering/Resolving]
  - Dependent personality disorder [Not Recovered/Not Resolved]
  - Decreased appetite [Recovered/Resolved]
  - Feeling of despair [Not Recovered/Not Resolved]
  - Bowel movement irregularity [Not Recovered/Not Resolved]
  - Device issue [Unknown]
  - Memory impairment [Not Recovered/Not Resolved]
  - Extra dose administered [Recovered/Resolved]
  - Asthenia [Not Recovered/Not Resolved]
  - Confusional state [Not Recovered/Not Resolved]
  - Depression [Not Recovered/Not Resolved]
  - Depressed mood [Not Recovered/Not Resolved]
  - Intentional product use issue [Not Recovered/Not Resolved]
  - Balance disorder [Not Recovered/Not Resolved]
  - Stress [Not Recovered/Not Resolved]
  - Dysphagia [Not Recovered/Not Resolved]
  - Decreased appetite [Not Recovered/Not Resolved]
  - Fatigue [Not Recovered/Not Resolved]
  - Nausea [Not Recovered/Not Resolved]
  - Hypophagia [Recovered/Resolved]
  - Cognitive disorder [Not Recovered/Not Resolved]
  - Aggression [Not Recovered/Not Resolved]
  - Discomfort [Not Recovered/Not Resolved]
  - Gait inability [Not Recovered/Not Resolved]
  - Malaise [Not Recovered/Not Resolved]
  - On and off phenomenon [Not Recovered/Not Resolved]
  - Muscle rigidity [Not Recovered/Not Resolved]
  - Dyskinesia [Recovered/Resolved]
  - Haematochezia [Recovered/Resolved]
  - Mood swings [Not Recovered/Not Resolved]
  - Therapeutic product effect variable [Recovered/Resolved]
  - Weight decreased [Not Recovered/Not Resolved]
  - Vomiting [Not Recovered/Not Resolved]
  - Constipation [Recovered/Resolved]
  - Initial insomnia [Not Recovered/Not Resolved]

NARRATIVE: CASE EVENT DATE: 201710
